FAERS Safety Report 8178807-7 (Version None)
Quarter: 2012Q1

REPORT INFORMATION
  Report Type: 
  Country: None (occurrence: None)
  Receive Date: 20120301
  Receipt Date: 20120217
  Transmission Date: 20120608
  Serious: Yes (Congenital Anomaly)
  Sender: FDA-Public Use
  Company Number: US-MYLANLABS-2012S1003878

PATIENT

DRUGS (2)
  1. LAMOTRIGINE [Suspect]
     Dosage: 150MG
     Route: 064
  2. VALPROIC ACID [Suspect]
     Dosage: 1000MG
     Route: 064

REACTIONS (4)
  - RENAL HYPOPLASIA [None]
  - MATERNAL EXPOSURE DURING PREGNANCY [None]
  - LIMB HYPOPLASIA CONGENITAL [None]
  - FINGER DEFORMITY [None]
